FAERS Safety Report 7703801-7 (Version None)
Quarter: 2011Q3

REPORT INFORMATION
  Report Type: 
  Country: None (occurrence: None)
  Receive Date: 20110823
  Receipt Date: 20110815
  Transmission Date: 20111222
  Serious: Yes (Other)
  Sender: FDA-Public Use
  Company Number: US-NAPPMUNDI-GBR-2011-0008675

PATIENT
  Age: 46 Year
  Sex: Female

DRUGS (15)
  1. METHADONE HYDROCHLORIDE [Concomitant]
     Indication: PAIN
     Dosage: 10 MG, DAILY
  2. METHADONE HYDROCHLORIDE [Concomitant]
     Dosage: 20 MG, DAILY
  3. BUPRENORPHINE (SIMILAR TO IND 50, 273) [Concomitant]
     Indication: PAIN
  4. COCAINE [Concomitant]
     Indication: DRUG ABUSE
  5. PREGABALIN [Concomitant]
  6. HYDROMORPHONE HCL [Suspect]
     Dosage: 4 TABLET, DAILY
     Route: 048
  7. MORPHINE SULFATE EXTENDED-RELEASE TABLETS (RHODES 74-769) [Concomitant]
     Indication: PELVIC PAIN
     Dosage: 120 MG, DAILY
     Route: 048
  8. GABAPENTIN [Concomitant]
  9. HYDROMORPHONE HCL [Suspect]
     Indication: PELVIC PAIN
     Route: 042
  10. MORPHINE SULFATE EXTENDED-RELEASE TABLETS (RHODES 74-769) [Concomitant]
     Dosage: 180 MG, DAILY
     Route: 048
  11. HYDROCODONE FILM-COATED TAB (59,175) [Concomitant]
     Indication: PELVIC PAIN
  12. ALPRAZOLAM [Concomitant]
     Indication: ANXIETY
  13. LIDOCAINE [Concomitant]
     Indication: PAIN
  14. MARIJUANA [Concomitant]
     Indication: DRUG ABUSE
  15. TRAMADOL HCL [Concomitant]
     Indication: PAIN

REACTIONS (10)
  - MENTAL STATUS CHANGES [None]
  - INADEQUATE ANALGESIA [None]
  - SQUAMOUS CELL CARCINOMA OF THE CERVIX [None]
  - DISEASE PROGRESSION [None]
  - RENAL FAILURE ACUTE [None]
  - SUICIDAL IDEATION [None]
  - DRUG ABUSE [None]
  - LACERATION [None]
  - PRODUCT TAMPERING [None]
  - TREATMENT NONCOMPLIANCE [None]
